FAERS Safety Report 10336865 (Version 2)
Quarter: 2014Q3

REPORT INFORMATION
  Report Type: Spontaneous
  Country: US (occurrence: US)
  Receive Date: 20140723
  Receipt Date: 20140723
  Transmission Date: 20150326
  Serious: No
  Sender: FDA-Public Use
  Company Number: US-MYLANLABS-2013S1018734

PATIENT
  Age: 64 Year
  Sex: Male
  Weight: 81.1 kg

DRUGS (11)
  1. MELPHALAN HYDROCHLORIDE FOR INJECTION [Suspect]
     Active Substance: MELPHALAN HYDROCHLORIDE
     Indication: STEM CELL TRANSPLANT
     Route: 042
     Dates: start: 20130814, end: 20130814
  2. MELPHALAN HYDROCHLORIDE FOR INJECTION [Suspect]
     Active Substance: MELPHALAN HYDROCHLORIDE
     Indication: STEM CELL TRANSPLANT
     Route: 042
     Dates: start: 20130814, end: 20130814
  3. DEXAMETHASONE. [Concomitant]
     Active Substance: DEXAMETHASONE
     Dosage: GIVEN 30 MINUTES PRIOR TO MELPHALAN
  4. ACYCLOVIR. [Concomitant]
     Active Substance: ACYCLOVIR
     Route: 048
     Dates: start: 20130814
  5. MELPHALAN HYDROCHLORIDE FOR INJECTION [Suspect]
     Active Substance: MELPHALAN HYDROCHLORIDE
     Indication: STEM CELL TRANSPLANT
     Route: 042
     Dates: start: 20130814, end: 20130814
  6. MELPHALAN HYDROCHLORIDE FOR INJECTION [Suspect]
     Active Substance: MELPHALAN HYDROCHLORIDE
     Indication: STEM CELL TRANSPLANT
     Route: 042
     Dates: start: 20130814, end: 20130814
  7. ONDANSETRON [Concomitant]
     Active Substance: ONDANSETRON
     Dosage: GIVEN 30 MINUTES PRIOR TO MELPHALAN
  8. LISINOPRIL. [Concomitant]
     Active Substance: LISINOPRIL
     Route: 048
     Dates: start: 20130813
  9. FOSAPREPITANT [Concomitant]
     Active Substance: FOSAPREPITANT
     Dosage: GIVEN 30 MINUTES PRIOR TO MELPHALAN
  10. REMERON [Concomitant]
     Active Substance: MIRTAZAPINE
     Route: 048
     Dates: start: 20130813
  11. RANITIDINE [Concomitant]
     Active Substance: RANITIDINE\RANITIDINE HYDROCHLORIDE
     Route: 048
     Dates: start: 20130813

REACTIONS (1)
  - Hypersensitivity [Recovered/Resolved]

NARRATIVE: CASE EVENT DATE: 20130814
